FAERS Safety Report 16188141 (Version 1)
Quarter: 2019Q2

REPORT INFORMATION
  Report Type: Report from Study
  Country: None (occurrence: CA)
  Receive Date: 20190412
  Receipt Date: 20190412
  Transmission Date: 20190711
  Serious: Yes (Hospitalization, Other)
  Sender: FDA-Public Use
  Company Number: CA-ABBVIE-18K-028-2466240-00

PATIENT
  Age: 31 Year
  Sex: Female

DRUGS (1)
  1. HUMIRA [Suspect]
     Active Substance: ADALIMUMAB
     Indication: ANKYLOSING SPONDYLITIS
     Route: 058
     Dates: start: 20161204

REACTIONS (6)
  - Back pain [Unknown]
  - Arthralgia [Unknown]
  - Exposure during pregnancy [Unknown]
  - Live birth [Unknown]
  - Premature baby [Unknown]
  - Hypertension [Unknown]

NARRATIVE: CASE EVENT DATE: 2018
